FAERS Safety Report 6883061-X (Version None)
Quarter: 2010Q3

REPORT INFORMATION
  Report Type: 
  Country: None (occurrence: None)
  Receive Date: 20100729
  Receipt Date: 20100716
  Transmission Date: 20110219
  Serious: Yes (Death, Hospitalization)
  Sender: FDA-Public Use
  Company Number: DE-ROCHE-716382

PATIENT
  Sex: Male
  Weight: 94 kg

DRUGS (4)
  1. HERCEPTIN [Suspect]
     Indication: METASTATIC GASTRIC CANCER
     Dosage: PLANNED 8 MG/KG, INTERRUPTED AFTER 70 MG (20 ML SOLUTION)
     Route: 042
     Dates: start: 20100520, end: 20100520
  2. TAXOTERE [Concomitant]
     Indication: METASTATIC GASTRIC CANCER
     Dosage: 2 APPLICATIONS GIVEN
     Dates: start: 20100501
  3. CISPLATIN [Concomitant]
     Indication: METASTATIC GASTRIC CANCER
     Dosage: 2 APPLICATIONS GIVEN
     Dates: start: 20100501
  4. FLUOROURACIL [Concomitant]
     Indication: METASTATIC GASTRIC CANCER
     Dosage: 2 APPLICATIONS GIVEN
     Dates: start: 20100501

REACTIONS (2)
  - CYTOKINE RELEASE SYNDROME [None]
  - TUMOUR LYSIS SYNDROME [None]
